FAERS Safety Report 10234721 (Version 1)
Quarter: 2014Q2

REPORT INFORMATION
  Report Type: Report from Study
  Country: CO (occurrence: CO)
  Receive Date: 20140613
  Receipt Date: 20140613
  Transmission Date: 20141212
  Serious: Yes (Death)
  Sender: FDA-Public Use
  Company Number: CO-ASTRAZENECA-2014SE40809

PATIENT
  Age: 28126 Day
  Sex: Female

DRUGS (2)
  1. BRILINTA [Suspect]
     Indication: INFARCTION
     Route: 048
     Dates: start: 20140224, end: 20140414
  2. ASA [Concomitant]

REACTIONS (2)
  - Acute myocardial infarction [Fatal]
  - Fluid retention [Unknown]
